FAERS Safety Report 15610746 (Version 2)
Quarter: 2023Q4

REPORT INFORMATION
  Report Type: Spontaneous
  Country: US (occurrence: None)
  Receive Date: 20181113
  Receipt Date: 20231127
  Transmission Date: 20240109
  Serious: No
  Sender: FDA-Public Use
  Company Number: US-ROCHE-2055023

PATIENT
  Age: 94 Year
  Sex: Female

DRUGS (16)
  1. LUCENTIS [Suspect]
     Active Substance: RANIBIZUMAB
     Indication: Vitreous degeneration
     Dosage: EVERY 4 WEEKS
     Route: 050
     Dates: start: 201511
  2. LUCENTIS [Suspect]
     Active Substance: RANIBIZUMAB
     Indication: Neovascular age-related macular degeneration
     Dosage: OS
     Route: 050
     Dates: start: 2012
  3. LASIX [Concomitant]
     Active Substance: FUROSEMIDE
  4. ALPRAZOLAM [Concomitant]
     Active Substance: ALPRAZOLAM
  5. AMLODIPINE [Concomitant]
     Active Substance: AMLODIPINE BESYLATE
  6. ATENOLOL [Concomitant]
     Active Substance: ATENOLOL
  7. ATORVASTATIN [Concomitant]
     Active Substance: ATORVASTATIN
  8. AZITHROMYCIN [Concomitant]
     Active Substance: AZITHROMYCIN
  9. BROMFENAC [Concomitant]
     Active Substance: BROMFENAC SODIUM
     Dosage: 0.09% OP
  10. ENALAPRIL [Concomitant]
     Active Substance: ENALAPRIL
  11. GLIPIZIDE ER [Concomitant]
     Active Substance: GLIPIZIDE
  12. METFORMIN [Concomitant]
     Active Substance: METFORMIN HYDROCHLORIDE
  13. OMEPRAZOLE [Concomitant]
     Active Substance: OMEPRAZOLE
  14. ONDANSETRON [Concomitant]
     Active Substance: ONDANSETRON
  15. RESTASIS [Concomitant]
     Active Substance: CYCLOSPORINE
  16. WARFARIN [Concomitant]
     Active Substance: WARFARIN

REACTIONS (3)
  - Photosensitivity reaction [Not Recovered/Not Resolved]
  - Lacrimation increased [Not Recovered/Not Resolved]
  - Dry eye [Unknown]
